FAERS Safety Report 7508231-9 (Version None)
Quarter: 2011Q2

REPORT INFORMATION
  Report Type: 
  Country: None (occurrence: None)
  Receive Date: 20110527
  Receipt Date: 20110519
  Transmission Date: 20111010
  Serious: Yes (Hospitalization)
  Sender: FDA-Public Use
  Company Number: NL-ASTELLAS-2011EU002770

PATIENT
  Sex: Female

DRUGS (4)
  1. CORTICOSTEROID NOS [Concomitant]
     Indication: DERMATITIS ATOPIC
     Dosage: UNK
     Route: 061
  2. TACROLIMUS [Suspect]
     Indication: DERMATITIS ATOPIC
     Dosage: 0.1 %, WEEKLY
     Route: 061
     Dates: start: 20030201, end: 20101015
  3. NORDETTE-28 [Concomitant]
     Dosage: 30 DF, UID/QD
     Route: 048
     Dates: start: 20090101
  4. FEXOFENADINE HCL [Concomitant]
     Indication: DERMATITIS ATOPIC
     Dosage: 240 MG, UID/QD
     Route: 065
     Dates: start: 20010101

REACTIONS (2)
  - GASTRITIS HAEMORRHAGIC [None]
  - GASTROENTERITIS [None]
